FAERS Safety Report 13992549 (Version 1)
Quarter: 2017Q3

REPORT INFORMATION
  Report Type: Report from Study
  Country: US (occurrence: US)
  Receive Date: 20170920
  Receipt Date: 20170920
  Transmission Date: 20171128
  Serious: Yes (Death, Hospitalization, Other)
  Sender: FDA-Public Use
  Company Number: US-BRISTOL-MYERS SQUIBB COMPANY-BMS-2017-082277

PATIENT
  Age: 20 Year
  Sex: Male
  Weight: 51.7 kg

DRUGS (2)
  1. IPILIMUMAB [Suspect]
     Active Substance: IPILIMUMAB
     Indication: NEOPLASM
     Dosage: 52.1 MG, UNK
     Route: 042
     Dates: start: 20170621, end: 20170621
  2. NIVOLUMAB [Suspect]
     Active Substance: NIVOLUMAB
     Indication: NASOPHARYNGEAL CANCER
     Dosage: 240 MG, Q2WK
     Route: 042
     Dates: start: 20170621, end: 20170621

REACTIONS (4)
  - Malignant neoplasm progression [Fatal]
  - Back pain [Unknown]
  - Pleural effusion [Unknown]
  - Abdominal pain [Unknown]

NARRATIVE: CASE EVENT DATE: 20170629
